FAERS Safety Report 24822633 (Version 1)
Quarter: 2025Q1

REPORT INFORMATION
  Report Type: Spontaneous
  Country: CN (occurrence: CN)
  Receive Date: 20250109
  Receipt Date: 20250109
  Transmission Date: 20250409
  Serious: Yes (Hospitalization)
  Sender: BEIGENE
  Company Number: CN-BEIGENE-BGN-2025-000056

PATIENT

DRUGS (9)
  1. TISLELIZUMAB [Suspect]
     Active Substance: TISLELIZUMAB
     Indication: Bladder transitional cell carcinoma
     Dates: start: 2022, end: 202306
  2. TISLELIZUMAB [Suspect]
     Active Substance: TISLELIZUMAB
     Indication: Metastases to lymph nodes
  3. TISLELIZUMAB [Suspect]
     Active Substance: TISLELIZUMAB
     Indication: Metastases to penis
  4. CISPLATIN [Suspect]
     Active Substance: CISPLATIN
     Indication: Bladder transitional cell carcinoma
     Dates: start: 2022, end: 202306
  5. CISPLATIN [Suspect]
     Active Substance: CISPLATIN
     Indication: Metastases to lymph nodes
  6. CISPLATIN [Suspect]
     Active Substance: CISPLATIN
     Indication: Metastases to penis
  7. GEMCITABINE [Concomitant]
     Active Substance: GEMCITABINE
     Indication: Bladder transitional cell carcinoma
     Dates: start: 2022, end: 202306
  8. GEMCITABINE [Concomitant]
     Active Substance: GEMCITABINE
     Indication: Metastases to lymph nodes
  9. GEMCITABINE [Concomitant]
     Active Substance: GEMCITABINE
     Indication: Metastases to penis

REACTIONS (2)
  - Immune-mediated hypothyroidism [Unknown]
  - Pericardial effusion [Unknown]

NARRATIVE: CASE EVENT DATE: 20230601
